FAERS Safety Report 13941305 (Version 2)
Quarter: 2017Q3

REPORT INFORMATION
  Report Type: Report from Study
  Country: CN (occurrence: CN)
  Receive Date: 20170906
  Receipt Date: 20170908
  Transmission Date: 20171127
  Serious: Yes (Hospitalization)
  Sender: FDA-Public Use
  Company Number: CN-ROCHE-1988890

PATIENT
  Age: 53 Year
  Sex: Male
  Weight: 56 kg

DRUGS (8)
  1. GLUTATHIONE SODIUM [Suspect]
     Active Substance: GLUTATHIONE
     Indication: PROPHYLAXIS
     Route: 042
     Dates: start: 20170816
  2. PHOSPHATIDYL CHOLINE [Suspect]
     Active Substance: LECITHIN
     Indication: PROPHYLAXIS
     Route: 042
     Dates: start: 20170821
  3. ASPIRIN. [Concomitant]
     Active Substance: ASPIRIN
     Route: 048
     Dates: start: 20170808
  4. ALTEPLASE. [Suspect]
     Active Substance: ALTEPLASE
     Indication: ISCHAEMIC STROKE
  5. ASPIRIN. [Concomitant]
     Active Substance: ASPIRIN
     Route: 048
     Dates: start: 20170808, end: 20170808
  6. ALTEPLASE. [Suspect]
     Active Substance: ALTEPLASE
     Indication: ISCHAEMIC STROKE
     Route: 042
     Dates: start: 20170807
  7. MIZOLLEN [Suspect]
     Active Substance: MIZOLASTINE
     Indication: PROPHYLAXIS
     Dosage: UNIT WAS IN LOCAL CHARACTER (6
     Route: 048
     Dates: start: 20170821
  8. IRBESARTAN. [Concomitant]
     Active Substance: IRBESARTAN
     Indication: HYPERTENSION
     Route: 048
     Dates: start: 20170820

REACTIONS (1)
  - Hepatic function abnormal [Not Recovered/Not Resolved]

NARRATIVE: CASE EVENT DATE: 20170824
